FAERS Safety Report 17085783 (Version 1)
Quarter: 2019Q4

REPORT INFORMATION
  Report Type: Spontaneous
  Country: US (occurrence: US)
  Receive Date: 20191127
  Receipt Date: 20191127
  Transmission Date: 20200122
  Serious: Yes (Hospitalization)
  Sender: FDA-Public Use
  Company Number: None

PATIENT
  Age: 90 Year
  Sex: Male
  Weight: 90 kg

DRUGS (9)
  1. COUMADIN [Suspect]
     Active Substance: WARFARIN SODIUM
     Indication: ANTICOAGULANT THERAPY
     Dosage: ?          OTHER FREQUENCY:5 MG X 7.5 MG FRI;?
     Route: 048
     Dates: start: 20140228
  2. GABAPENTIN. [Concomitant]
     Active Substance: GABAPENTIN
     Dates: start: 20190830
  3. ALBUTEROL. [Concomitant]
     Active Substance: ALBUTEROL
     Dates: start: 20151004
  4. FORMOTEROL [Concomitant]
     Active Substance: FORMOTEROL
     Dates: start: 20190830
  5. METOPROLOL TARTRATE. [Concomitant]
     Active Substance: METOPROLOL TARTRATE
     Dates: start: 20150901
  6. FLECAINIDE [Concomitant]
     Active Substance: FLECAINIDE
     Dates: start: 20150901
  7. WARFARIN [Concomitant]
     Active Substance: WARFARIN
     Dates: start: 20150901
  8. BUMETANIDE. [Concomitant]
     Active Substance: BUMETANIDE
     Dates: start: 20150901
  9. LOSARTAN. [Concomitant]
     Active Substance: LOSARTAN
     Dates: start: 20150901

REACTIONS (4)
  - Haemoglobin decreased [None]
  - Haematochezia [None]
  - Back pain [None]
  - Therapy cessation [None]

NARRATIVE: CASE EVENT DATE: 20191118
